FAERS Safety Report 8422355-3 (Version None)
Quarter: 2012Q2

REPORT INFORMATION
  Report Type: 
  Country: None (occurrence: None)
  Receive Date: 20120608
  Receipt Date: 20120604
  Transmission Date: 20120825
  Serious: No
  Sender: FDA-Public Use
  Company Number: US-BAYER-2012-056383

PATIENT

DRUGS (2)
  1. MIRENA [Suspect]
  2. VIVELLE [Concomitant]

REACTIONS (1)
  - DEVICE MISUSE [None]
